FAERS Safety Report 10029554 (Version 1)
Quarter: 2014Q1

REPORT INFORMATION
  Report Type: Spontaneous
  Country: US (occurrence: None)
  Receive Date: 20140320
  Receipt Date: 20140320
  Transmission Date: 20141002
  Serious: Yes (Other)
  Sender: FDA-Public Use
  Company Number: None

PATIENT
  Age: 45 Year
  Sex: Female
  Weight: 79.38 kg

DRUGS (1)
  1. BRIMONIDINE [Suspect]
     Indication: ROSACEA
     Route: 061
     Dates: start: 20140312, end: 20140315

REACTIONS (6)
  - Burning sensation [None]
  - Erythema [None]
  - Palpitations [None]
  - Heart rate increased [None]
  - Dyspnoea [None]
  - Chest pain [None]
